FAERS Safety Report 5895080-0 (Version None)
Quarter: 2008Q3

REPORT INFORMATION
  Report Type: 
  Country: None (occurrence: None)
  Receive Date: 20080924
  Receipt Date: 20080912
  Transmission Date: 20090109
  Serious: Yes (Hospitalization)
  Sender: FDA-Public Use
  Company Number: JP-PFIZER INC-2008076531

PATIENT
  Age: 56 Year
  Sex: Female

DRUGS (7)
  1. LIPITOR [Suspect]
     Route: 048
     Dates: start: 20030901
  2. HIBON [Concomitant]
     Route: 048
  3. PYDOXAL [Concomitant]
     Route: 048
  4. LENDORMIN [Concomitant]
     Route: 048
  5. LOXONIN [Concomitant]
     Route: 048
  6. MUCOSTA [Concomitant]
     Route: 048
  7. VOLTAREN [Concomitant]
     Route: 054

REACTIONS (1)
  - INTERVERTEBRAL DISC PROTRUSION [None]
